FAERS Safety Report 5128565-5 (Version None)
Quarter: 2006Q4

REPORT INFORMATION
  Report Type: 
  Country: None (occurrence: None)
  Receive Date: 20061017
  Receipt Date: 20061016
  Transmission Date: 20070319
  Serious: Yes (Life-Threatening)
  Sender: FDA-Public Use
  Company Number: US-GLAXOSMITHKLINE-A0623736A

PATIENT
  Age: 74 Year
  Sex: Female

DRUGS (7)
  1. REQUIP [Suspect]
     Indication: RESTLESS LEGS SYNDROME
     Dosage: .25MG THREE TIMES PER DAY
     Route: 048
     Dates: start: 20050701
  2. TRICOR [Concomitant]
  3. NEXIUM [Concomitant]
  4. MOBIC [Concomitant]
  5. PREMARIN [Concomitant]
  6. ALLEGRA [Concomitant]
  7. PRAVACHOL [Concomitant]

REACTIONS (3)
  - SLEEP ATTACKS [None]
  - SUDDEN ONSET OF SLEEP [None]
  - SYNCOPE [None]
